FAERS Safety Report 23480855 (Version 1)
Quarter: 2024Q1

REPORT INFORMATION
  Report Type: Spontaneous
  Country: US (occurrence: US)
  Receive Date: 20240205
  Receipt Date: 20240205
  Transmission Date: 20240410
  Serious: No
  Sender: FDA-Public Use
  Company Number: US-AMRYT PHARMACEUTICALS DAC-AEGR006761

PATIENT
  Sex: Female
  Weight: 11.791 kg

DRUGS (2)
  1. MYALEPT [Suspect]
     Active Substance: METRELEPTIN
     Indication: Lipodystrophy acquired
     Dosage: 0.6 MILLIGRAM (0.12 ML OR 12 UNITS), QD
     Route: 058
  2. STERILE WATER [Concomitant]
     Active Substance: WATER
     Indication: Product used for unknown indication

REACTIONS (1)
  - Ear infection [Not Recovered/Not Resolved]
